FAERS Safety Report 7690822-6 (Version None)
Quarter: 2011Q3

REPORT INFORMATION
  Report Type: 
  Country: None (occurrence: None)
  Receive Date: 20110818
  Receipt Date: 20110812
  Transmission Date: 20111222
  Serious: Yes (Disabling, Other)
  Sender: FDA-Public Use
  Company Number: US-PFIZER INC-2011186344

PATIENT
  Sex: Male
  Weight: 65.76 kg

DRUGS (9)
  1. CYMBALTA [Suspect]
     Indication: DEPRESSION
     Dosage: 30 MG, 1X/DAY
     Route: 048
     Dates: start: 20110201
  2. PRILOSEC [Concomitant]
     Indication: GASTROOESOPHAGEAL REFLUX DISEASE
     Dosage: 20 MG, 1X/DAY
  3. FLEXERIL [Concomitant]
     Indication: MUSCLE SPASMS
     Dosage: 10 MG, 3X/DAY
  4. MORPHINE SULFATE [Suspect]
     Indication: PAIN
     Dosage: UNK
  5. NEURONTIN [Suspect]
     Indication: COMPLEX REGIONAL PAIN SYNDROME
     Dosage: 800 MG, 5X/DAY
     Route: 048
     Dates: start: 20030101
  6. ZICONOTIDE [Concomitant]
     Indication: PAIN
     Dosage: UNK
  7. SUBUTEX [Concomitant]
     Indication: PAIN
     Dosage: 6 MG,  DAILY
  8. CYMBALTA [Suspect]
     Indication: FIBROMYALGIA
  9. CLONAZEPAM [Concomitant]
     Indication: NERVOUS SYSTEM DISORDER
     Dosage: 0.5 MG, 4X/DAY

REACTIONS (9)
  - DRUG DELIVERY DEVICE IMPLANTATION [None]
  - WEIGHT INCREASED [None]
  - COMPLEX REGIONAL PAIN SYNDROME [None]
  - ANGER [None]
  - THERMAL BURN [None]
  - DEPRESSION [None]
  - SUICIDAL BEHAVIOUR [None]
  - WHEELCHAIR USER [None]
  - HYPOTENSION [None]
